FAERS Safety Report 6047734-3 (Version None)
Quarter: 2009Q1

REPORT INFORMATION
  Report Type: 
  Country: None (occurrence: None)
  Receive Date: 20090123
  Receipt Date: 20090119
  Transmission Date: 20090719
  Serious: Yes (Other)
  Sender: FDA-Public Use
  Company Number: US-JNJFOC-20090104528

PATIENT
  Sex: Male
  Weight: 61.24 kg

DRUGS (15)
  1. FENTANYL TRANSDERMAL SYSTEM [Suspect]
     Indication: OSTEOARTHRITIS
     Route: 062
  2. FENTANYL TRANSDERMAL SYSTEM [Suspect]
     Indication: ARTHRALGIA
     Route: 062
  3. FENTANYL TRANSDERMAL SYSTEM [Suspect]
     Indication: BACK PAIN
     Route: 062
  4. FORTICAL [Concomitant]
     Indication: OSTEOPOROSIS
     Dosage: SPRAY/SOLUTION
     Route: 045
  5. TRAZODONE HCL [Concomitant]
     Indication: INSOMNIA
     Dosage: AT BED TIME
     Route: 048
  6. LACTULOSE [Concomitant]
     Indication: ABNORMAL FAECES
     Dosage: 30 ML/LIQUID SOLUTION/10G/5ML/AT BED TIME/ORAL
     Route: 048
  7. ZOLOFT [Concomitant]
     Indication: DEPRESSION
     Route: 048
  8. REMERON [Concomitant]
     Indication: DEPRESSION
     Route: 048
  9. DILAUDID [Concomitant]
     Indication: ARTHRALGIA
     Route: 048
  10. DILAUDID [Concomitant]
     Indication: BACK PAIN
     Route: 048
  11. VALIUM [Concomitant]
     Indication: MUSCLE SPASMS
     Dosage: AS NEEDED
     Route: 048
  12. SPIRIVA [Concomitant]
     Indication: CHRONIC OBSTRUCTIVE PULMONARY DISEASE
     Route: 055
  13. ADVAIR DISKUS 100/50 [Concomitant]
     Indication: CHRONIC OBSTRUCTIVE PULMONARY DISEASE
     Route: 055
  14. ALBUTEROL [Concomitant]
     Indication: CHRONIC OBSTRUCTIVE PULMONARY DISEASE
     Dosage: AS NEEDED
     Route: 055
  15. ALBUTEROL [Concomitant]
     Indication: CHRONIC OBSTRUCTIVE PULMONARY DISEASE
     Dosage: AS NEEDED
     Route: 055

REACTIONS (14)
  - ADRENAL DISORDER [None]
  - AMNESIA [None]
  - ARTHRALGIA [None]
  - BLADDER OBSTRUCTION [None]
  - BLOOD TESTOSTERONE ABNORMAL [None]
  - DISORIENTATION [None]
  - DYSURIA [None]
  - INFLUENZA LIKE ILLNESS [None]
  - NEPHROTIC SYNDROME [None]
  - RENAL DISORDER [None]
  - URINE FLOW DECREASED [None]
  - VISION BLURRED [None]
  - WEIGHT DECREASED [None]
  - WITHDRAWAL SYNDROME [None]
